FAERS Safety Report 18085458 (Version 1)
Quarter: 2020Q3

REPORT INFORMATION
  Report Type: Spontaneous
  Country: US (occurrence: US)
  Receive Date: 20200728
  Receipt Date: 20200728
  Transmission Date: 20201103
  Serious: No
  Sender: FDA-Public Use
  Company Number: US-PERRIGO-20US006723

PATIENT
  Sex: Male

DRUGS (1)
  1. MINOXIDIL. [Suspect]
     Active Substance: MINOXIDIL
     Indication: HYPOTRICHOSIS
     Dosage: UNKNOWN, UNKNOWN
     Route: 061
     Dates: start: 20200421

REACTIONS (6)
  - Application site pain [Unknown]
  - Off label use [Unknown]
  - Skin tightness [Unknown]
  - Product administered at inappropriate site [Unknown]
  - Application site rash [Unknown]
  - Application site exfoliation [Unknown]

NARRATIVE: CASE EVENT DATE: 202004
